FAERS Safety Report 19251712 (Version 1)
Quarter: 2021Q2

REPORT INFORMATION
  Report Type: Spontaneous
  Country: CN (occurrence: CN)
  Receive Date: 20210513
  Receipt Date: 20210513
  Transmission Date: 20210717
  Serious: Yes (Hospitalization, Other)
  Sender: FDA-Public Use
  Company Number: CN-NOVOPROD-809237

PATIENT
  Age: 66 Year
  Sex: Female
  Weight: 46 kg

DRUGS (4)
  1. NOVOMIX 30 PENFILL [Suspect]
     Active Substance: INSULIN ASPART
     Dosage: 28 IU, QD (18 IU IN THE MORNING AND 10 IU IN THE EVENING )
     Route: 058
     Dates: start: 20210416
  2. INSULIN GLARGINE [Concomitant]
     Active Substance: INSULIN GLARGINE
     Dosage: 5 IU, BEFORE SLEEP
     Route: 058
  3. NOVOMIX 30 PENFILL [Suspect]
     Active Substance: INSULIN ASPART
     Indication: DIABETES MELLITUS
     Dosage: 34 IU, QD (22 IU IN THE MORNING AND 12 IU IN THE EVENING BEFORE MEALS)
     Route: 058
     Dates: start: 20210401
  4. NOVOMIX 30 PENFILL [Suspect]
     Active Substance: INSULIN ASPART
     Dosage: 15 IU, QD (5 IU, 5 IU AND 5 IU, BEFORE MEALS)
     Route: 058
     Dates: start: 20210417, end: 202104

REACTIONS (2)
  - Pain [Unknown]
  - Hypoglycaemia [Recovered/Resolved]

NARRATIVE: CASE EVENT DATE: 202104
